FAERS Safety Report 8054004-0 (Version None)
Quarter: 2012Q1

REPORT INFORMATION
  Report Type: 
  Country: None (occurrence: None)
  Receive Date: 20120118
  Receipt Date: 20120111
  Transmission Date: 20120608
  Serious: No
  Sender: FDA-Public Use
  Company Number: US-BAYER-2012-005016

PATIENT

DRUGS (2)
  1. YAZ [Suspect]
  2. ALEVE (CAPLET) [Suspect]
     Indication: HEADACHE

REACTIONS (3)
  - MOOD ALTERED [None]
  - FEELING ABNORMAL [None]
  - METRORRHAGIA [None]
